FAERS Safety Report 8361825-3 (Version None)
Quarter: 2012Q2

REPORT INFORMATION
  Report Type: 
  Country: None (occurrence: None)
  Receive Date: 20120515
  Receipt Date: 20120509
  Transmission Date: 20120825
  Serious: Yes (Other)
  Sender: FDA-Public Use
  Company Number: FR-GLAXOSMITHKLINE-B0800476A

PATIENT
  Age: 58 Year
  Sex: Female

DRUGS (4)
  1. ACETAMINOPHEN AND TRAMADOL HCL [Concomitant]
     Indication: BACK PAIN
     Route: 048
  2. REQUIP [Suspect]
     Indication: RESTLESS LEGS SYNDROME
     Dosage: 5MG PER DAY
     Route: 048
  3. LEVOTHYROXINE SODIUM [Concomitant]
     Route: 048
  4. CRESTOR [Concomitant]
     Dosage: 10MG PER DAY
     Route: 048

REACTIONS (4)
  - SUDDEN ONSET OF SLEEP [None]
  - NAUSEA [None]
  - OVERDOSE [None]
  - COMPULSIVE SHOPPING [None]
